FAERS Safety Report 4654083-4 (Version None)
Quarter: 2005Q2

REPORT INFORMATION
  Report Type: 
  Country: None (occurrence: None)
  Receive Date: 20050404
  Receipt Date: 20041216
  Transmission Date: 20051028
  Serious: No
  Sender: FDA-Public Use
  Company Number: USA041286382

PATIENT
  Age: 68 Year
  Sex: Female

DRUGS (10)
  1. CYMBALTA [Suspect]
     Indication: DEPRESSION
     Dosage: 90 MG DAY
     Dates: start: 20041001
  2. COVERA-HS [Concomitant]
  3. SYNTHROID [Concomitant]
  4. ESTRATEST H.S. [Concomitant]
  5. PREVACID [Concomitant]
  6. LASIX [Concomitant]
  7. POTASSIUM CHLORIDE [Concomitant]
  8. DITROPAN XL [Concomitant]
  9. NAPROXEN SODIUM [Concomitant]
  10. METHADONE [Concomitant]

REACTIONS (5)
  - DIZZINESS [None]
  - FALL [None]
  - HEART RATE INCREASED [None]
  - ORTHOSTATIC HYPOTENSION [None]
  - PRESCRIBED OVERDOSE [None]
